FAERS Safety Report 13895058 (Version 1)
Quarter: 2017Q3

REPORT INFORMATION
  Report Type: Spontaneous
  Country: US (occurrence: None)
  Receive Date: 20170817
  Receipt Date: 20170817
  Transmission Date: 20171127
  Serious: Yes (Hospitalization)
  Sender: FDA-Public Use
  Company Number: None

PATIENT
  Age: 76 Year
  Sex: Male

DRUGS (1)
  1. IMATINIB MESYLATE 400MG RANBAXY [Suspect]
     Active Substance: IMATINIB MESYLATE
     Indication: ANAEMIA
     Route: 048
     Dates: start: 20170126, end: 20170811

REACTIONS (3)
  - Fluid retention [None]
  - Oedema [None]
  - Pulmonary oedema [None]

NARRATIVE: CASE EVENT DATE: 20170811
